FAERS Safety Report 9883226 (Version 1)
Quarter: 2014Q1

REPORT INFORMATION
  Report Type: Spontaneous
  Country: NL (occurrence: NL)
  Receive Date: 20140208
  Receipt Date: 20140208
  Transmission Date: 20141002
  Serious: Yes (Other)
  Sender: FDA-Public Use
  Company Number: NL-MYLANLABS-2014S1002389

PATIENT
  Age: 49 Year
  Sex: Male

DRUGS (2)
  1. CIPROFLOXACIN [Suspect]
     Route: 065
  2. CLOZAPINE [Interacting]
     Indication: SCHIZOPHRENIA
     Route: 065

REACTIONS (2)
  - Toxicity to various agents [Recovered/Resolved]
  - Drug interaction [Recovered/Resolved]
